FAERS Safety Report 4313238-9 (Version None)
Quarter: 2004Q1

REPORT INFORMATION
  Report Type: 
  Country: None (occurrence: None)
  Receive Date: 20040305
  Receipt Date: 20040223
  Transmission Date: 20041129
  Serious: Yes (Life-Threatening, Hospitalization)
  Sender: FDA-Public Use
  Company Number: A-CH2004-04191

PATIENT
  Age: 58 Year
  Sex: Female

DRUGS (10)
  1. TRACLEER [Suspect]
     Indication: PULMONARY HYPERTENSION
     Dosage: SEE IMAGE
     Route: 048
     Dates: start: 20030922, end: 20031015
  2. TRACLEER [Suspect]
     Indication: PULMONARY HYPERTENSION
     Dosage: SEE IMAGE
     Route: 048
     Dates: start: 20031016, end: 20040105
  3. TRACLEER [Suspect]
     Indication: PULMONARY HYPERTENSION
     Dosage: SEE IMAGE
     Route: 048
     Dates: start: 20040106, end: 20040109
  4. TRACLEER [Suspect]
     Indication: PULMONARY HYPERTENSION
     Dosage: SEE IMAGE
     Route: 048
     Dates: start: 20040110
  5. OXYGEN (OXYGEN) [Concomitant]
  6. LASIX [Concomitant]
  7. ALDACTONE [Concomitant]
  8. DILRENE (DILTIAZEM HYDROCHLORIDE) [Concomitant]
  9. PREVISCAN (FLUINDIONE) [Concomitant]
  10. STILNOX (ZOLPIDEM) [Concomitant]

REACTIONS (10)
  - CARDIOMEGALY [None]
  - CARDIOPULMONARY FAILURE [None]
  - DRY MOUTH [None]
  - DYSPNOEA EXACERBATED [None]
  - HYPOXIA [None]
  - NIGHTMARE [None]
  - OEDEMA PERIPHERAL [None]
  - POST PROCEDURAL COMPLICATION [None]
  - PULMONARY ARTERIAL WEDGE PRESSURE INCREASED [None]
  - WEIGHT INCREASED [None]
